FAERS Safety Report 14973768 (Version 1)
Quarter: 2018Q2

REPORT INFORMATION
  Report Type: Spontaneous
  Country: CN (occurrence: CN)
  Receive Date: 20180605
  Receipt Date: 20180605
  Transmission Date: 20180711
  Serious: Yes (Hospitalization, Other)
  Sender: FDA-Public Use
  Company Number: CN-PFIZER INC-2018223505

PATIENT
  Age: 13 Year
  Sex: Female
  Weight: 39 kg

DRUGS (1)
  1. SOLU-MEDROL [Suspect]
     Active Substance: METHYLPREDNISOLONE SODIUM SUCCINATE
     Indication: THYROIDITIS
     Dosage: 35 MG, 1X/DAY
     Route: 041
     Dates: start: 20180327, end: 20180328

REACTIONS (3)
  - Thyrotoxic crisis [Unknown]
  - Infusion related reaction [Recovered/Resolved]
  - Condition aggravated [Unknown]

NARRATIVE: CASE EVENT DATE: 20180328
